FAERS Safety Report 24540760 (Version 1)
Quarter: 2024Q4

REPORT INFORMATION
  Report Type: Spontaneous
  Country: BR (occurrence: BR)
  Receive Date: 20241023
  Receipt Date: 20241023
  Transmission Date: 20250115
  Serious: Yes (Other)
  Sender: NOVARTIS
  Company Number: BR-002147023-NVSC2024BR204648

PATIENT
  Sex: Male

DRUGS (1)
  1. VOTRIENT [Suspect]
     Active Substance: PAZOPANIB HYDROCHLORIDE
     Indication: Product used for unknown indication
     Dosage: 4 DOSAGE FORM, QD (Y IN THE MORNING ON A FAST DAILY)
     Route: 065

REACTIONS (5)
  - Bone cancer [Unknown]
  - Metastases to spine [Unknown]
  - Metastases to bone [Unknown]
  - Lung neoplasm malignant [Unknown]
  - Pain [Unknown]
